FAERS Safety Report 11693997 (Version 3)
Quarter: 2015Q4

REPORT INFORMATION
  Report Type: Spontaneous
  Country: US (occurrence: US)
  Receive Date: 20151103
  Receipt Date: 20151202
  Transmission Date: 20160304
  Serious: Yes (Other)
  Sender: FDA-Public Use
  Company Number: US-BAYER-2015-451915

PATIENT
  Sex: Male

DRUGS (2)
  1. NEXAVAR [Suspect]
     Active Substance: SORAFENIB
     Dosage: UNK
     Route: 045
     Dates: start: 2001, end: 2002
  2. RISPERDAL [Concomitant]
     Active Substance: RISPERIDONE

REACTIONS (5)
  - Occupational exposure to product [Not Recovered/Not Resolved]
  - Anger [None]
  - Electrocardiogram T wave abnormal [Not Recovered/Not Resolved]
  - Chest discomfort [None]
  - Electrocardiogram ST-T change [None]

NARRATIVE: CASE EVENT DATE: 2001
